FAERS Safety Report 8905284 (Version 8)
Quarter: 2015Q3

REPORT INFORMATION
  Report Type: Report from Study
  Country: CA (occurrence: CA)
  Receive Date: 20121112
  Receipt Date: 20150731
  Transmission Date: 20151125
  Serious: Yes (Death, Hospitalization, Other)
  Sender: FDA-Public Use
  Company Number: PHHY2010CA11611

PATIENT
  Age: 71 Year
  Sex: Female

DRUGS (15)
  1. EXJADE [Suspect]
     Active Substance: DEFERASIROX
     Dosage: UNK
     Route: 048
     Dates: start: 201209
  2. EXJADE [Suspect]
     Active Substance: DEFERASIROX
     Dosage: 500 MG, QD
     Route: 048
  3. COUMADIN [Concomitant]
     Active Substance: WARFARIN SODIUM
     Indication: PRODUCT USED FOR UNKNOWN INDICATION
     Dosage: 1 DF, QD
     Route: 048
  4. COUMADIN [Concomitant]
     Active Substance: WARFARIN SODIUM
     Dosage: 7 MG, QD
     Route: 048
  5. LACTAID [Concomitant]
     Active Substance: LACTASE
     Indication: PRODUCT USED FOR UNKNOWN INDICATION
     Route: 065
  6. EXJADE [Suspect]
     Active Substance: DEFERASIROX
     Indication: MYELOFIBROSIS
     Dosage: 500 MG, QD
     Route: 048
     Dates: start: 20081201
  7. EXJADE [Suspect]
     Active Substance: DEFERASIROX
     Dosage: 2 DF, QD
     Route: 048
  8. EXJADE [Suspect]
     Active Substance: DEFERASIROX
     Dosage: 1 DF, DAILY
     Route: 048
  9. EXJADE [Suspect]
     Active Substance: DEFERASIROX
     Dosage: ALTERNATING DOSES OF 500 MG, QD AND 1000 MG, QD
     Route: 048
     Dates: start: 201502
  10. EXJADE [Suspect]
     Active Substance: DEFERASIROX
     Dosage: 1000 MG, QD
     Route: 048
     Dates: start: 2009, end: 20110117
  11. EXJADE [Suspect]
     Active Substance: DEFERASIROX
     Dosage: 1000 MG, QD
     Route: 048
     Dates: start: 20110121
  12. EXJADE [Suspect]
     Active Substance: DEFERASIROX
     Dosage: 500 MG, UNK
     Route: 048
  13. EXJADE [Suspect]
     Active Substance: DEFERASIROX
     Dosage: ALTERNATING DOSES OF 500 AND 1000 MG, QD
     Route: 048
  14. ASPIRIN EC [Concomitant]
     Active Substance: ASPIRIN
     Indication: PRODUCT USED FOR UNKNOWN INDICATION
     Dosage: 1 DF, QD
     Route: 048
  15. EXJADE [Suspect]
     Active Substance: DEFERASIROX
     Dosage: 500 MG, QD
     Route: 048
     Dates: start: 201303

REACTIONS (22)
  - Cataract [Unknown]
  - Weight fluctuation [Unknown]
  - Pain [Unknown]
  - Liver disorder [Unknown]
  - Stomatitis [Unknown]
  - Dry eye [Unknown]
  - Diarrhoea [Recovered/Resolved]
  - Haemoglobin decreased [Unknown]
  - Milk allergy [Unknown]
  - Immune system disorder [Unknown]
  - Skin infection [Unknown]
  - Pyrexia [Unknown]
  - Dyspepsia [Unknown]
  - Death [Fatal]
  - Blood count abnormal [Unknown]
  - Hypoaesthesia [Not Recovered/Not Resolved]
  - Infection [Unknown]
  - Abdominal pain upper [Unknown]
  - Paraesthesia [Unknown]
  - Abdominal discomfort [Recovered/Resolved]
  - Dysphagia [Unknown]
  - Neuropathy peripheral [Not Recovered/Not Resolved]

NARRATIVE: CASE EVENT DATE: 2009
